FAERS Safety Report 22175334 (Version 1)
Quarter: 2023Q2

REPORT INFORMATION
  Report Type: Spontaneous
  Country: US (occurrence: US)
  Receive Date: 20230405
  Receipt Date: 20230405
  Transmission Date: 20230721
  Serious: No
  Sender: FDA-Public Use
  Company Number: US-BRISTOL-MYERS SQUIBB COMPANY-2023-047296

PATIENT

DRUGS (1)
  1. OPDUALAG [Suspect]
     Active Substance: NIVOLUMAB\RELATLIMAB-RMBW
     Indication: Product used for unknown indication
     Dosage: DOSE : UNKNOWN;     FREQ : UNKNOWN
     Route: 042

REACTIONS (4)
  - Flushing [Unknown]
  - Dyspnoea [Unknown]
  - Oxygen saturation decreased [Unknown]
  - Infusion related reaction [Unknown]
